FAERS Safety Report 8476418-7 (Version None)
Quarter: 2012Q2

REPORT INFORMATION
  Report Type: 
  Country: None (occurrence: None)
  Receive Date: 20120628
  Receipt Date: 20120622
  Transmission Date: 20120825
  Serious: Yes (Other)
  Sender: FDA-Public Use
  Company Number: PHHY2012BR055177

PATIENT
  Age: 62 Year
  Sex: Female

DRUGS (2)
  1. ALPRAZOLAM [Suspect]
     Route: 048
  2. PAROXETINE [Suspect]
     Indication: ANXIETY

REACTIONS (8)
  - RESTLESSNESS [None]
  - ANXIETY [None]
  - INSOMNIA [None]
  - DIABETES MELLITUS [None]
  - SEDATION [None]
  - SINUS TACHYCARDIA [None]
  - HEART RATE INCREASED [None]
  - FEELING HOT [None]
